FAERS Safety Report 6672623-0 (Version None)
Quarter: 2010Q2

REPORT INFORMATION
  Report Type: 
  Country: None (occurrence: None)
  Receive Date: 20100406
  Receipt Date: 20100329
  Transmission Date: 20101027
  Serious: Yes (Death, Other)
  Sender: FDA-Public Use
  Company Number: 2009US002992

PATIENT
  Age: 49 Year
  Sex: Male

DRUGS (14)
  1. PROGRAF [Suspect]
     Indication: LIVER TRANSPLANT
     Dosage: 1 DF, UID/QD, ORAL
     Route: 048
     Dates: start: 20090705, end: 20090716
  2. SOLU-MEDROL [Suspect]
     Indication: LIVER TRANSPLANT
     Dates: start: 20090626
  3. CELLCEPT [Suspect]
     Indication: LIVER TRANSPLANT
     Dosage: 1000 MG, ORAL
     Route: 048
     Dates: start: 20090724
  4. DELTASONE [Suspect]
     Indication: LIVER TRANSPLANT
     Dosage: 10 MG, UID/QD,
     Dates: start: 20090720
  5. VALGANCICLOVIR HCL [Concomitant]
  6. ASPIRIN [Concomitant]
  7. SEPTRA [Concomitant]
  8. LASIX [Concomitant]
  9. HEPARIN SODIUM [Concomitant]
  10. PREVACID [Concomitant]
  11. ATIVAN [Concomitant]
  12. LOPRESSOR [Concomitant]
  13. MYCOSTATIN [Concomitant]
  14. SIROLIMUS [Concomitant]

REACTIONS (16)
  - ACUTE MYOCARDIAL INFARCTION [None]
  - ARTERIOSCLEROSIS CORONARY ARTERY [None]
  - ASTHENIA [None]
  - BRAIN HYPOXIA [None]
  - CARDIO-RESPIRATORY ARREST [None]
  - CEREBRAL HAEMORRHAGE [None]
  - DRUG TOXICITY [None]
  - ELECTROMECHANICAL DISSOCIATION [None]
  - FACIAL PALSY [None]
  - GRAND MAL CONVULSION [None]
  - HYPOXIC ENCEPHALOPATHY [None]
  - LIVER TRANSPLANT REJECTION [None]
  - LOSS OF CONSCIOUSNESS [None]
  - TOXIC ENCEPHALOPATHY [None]
  - VENTRICULAR FIBRILLATION [None]
  - VENTRICULAR TACHYCARDIA [None]
